FAERS Safety Report 17048708 (Version 1)
Quarter: 2019Q4

REPORT INFORMATION
  Report Type: Spontaneous
  Country: CA (occurrence: CA)
  Receive Date: 20191119
  Receipt Date: 20191119
  Transmission Date: 20200122
  Serious: Yes (Death, Hospitalization, Other)
  Sender: FDA-Public Use
  Company Number: CA-PFIZER INC-2019496911

PATIENT
  Age: 57 Year
  Sex: Female

DRUGS (4)
  1. MORPHINE SULFATE. [Suspect]
     Active Substance: MORPHINE SULFATE
     Dosage: UNK
  2. EXEMESTANE. [Concomitant]
     Active Substance: EXEMESTANE
     Dosage: UNK
  3. VOTRIENT [Suspect]
     Active Substance: PAZOPANIB HYDROCHLORIDE
     Indication: SARCOMA
     Dosage: 600 MG, 1X/DAY
  4. VOTRIENT [Suspect]
     Active Substance: PAZOPANIB HYDROCHLORIDE
     Dosage: 800 MG, UNK
     Route: 048

REACTIONS (15)
  - Vomiting [Fatal]
  - Dry throat [Fatal]
  - Eating disorder [Fatal]
  - Malignant neoplasm progression [Fatal]
  - Swelling [Fatal]
  - Cough [Fatal]
  - Feeling hot [Fatal]
  - Infection [Fatal]
  - Erythema [Fatal]
  - Nausea [Fatal]
  - Pain [Fatal]
  - Pleural effusion [Fatal]
  - Throat irritation [Fatal]
  - Tongue discomfort [Fatal]
  - Nasopharyngitis [Fatal]
